FAERS Safety Report 10258331 (Version 6)
Quarter: 2015Q1

REPORT INFORMATION
  Report Type: Spontaneous
  Country: US (occurrence: US)
  Receive Date: 20140625
  Receipt Date: 20150120
  Transmission Date: 20150720
  Serious: Yes (Congenital Anomaly, Other)
  Sender: FDA-Public Use
  Company Number: US-ELI_LILLY_AND_COMPANY-US201406007507

PATIENT
  Age: 0 Day

DRUGS (2)
  1. FLUOXETINE HYDROCHLORIDE. [Suspect]
     Active Substance: FLUOXETINE HYDROCHLORIDE
     Indication: PRODUCT USED FOR UNKNOWN INDICATION
     Dosage: UNK
     Route: 064
  2. FLUOXETINE HYDROCHLORIDE. [Suspect]
     Active Substance: FLUOXETINE HYDROCHLORIDE
     Indication: PRODUCT USED FOR UNKNOWN INDICATION
     Dosage: UNK
     Route: 064

REACTIONS (17)
  - Microsomia [Unknown]
  - Neonatal respiratory distress syndrome [Recovered/Resolved]
  - Asthma [Unknown]
  - Otitis media chronic [Unknown]
  - Hydronephrosis [Recovered/Resolved]
  - Blindness unilateral [Unknown]
  - Deafness [Unknown]
  - Foetal exposure during pregnancy [Recovered/Resolved]
  - IIIrd nerve paresis [Unknown]
  - Oculoauriculovertebral dysplasia [Unknown]
  - Malocclusion [Unknown]
  - Apgar score abnormal [Recovered/Resolved]
  - Duane^s syndrome [Unknown]
  - Apnoea [Recovered/Resolved]
  - Weight decrease neonatal [Unknown]
  - Eustachian tube dysfunction [Unknown]
  - Premature baby [Unknown]

NARRATIVE: CASE EVENT DATE: 20030214
